FAERS Safety Report 9129452 (Version 1)
Quarter: 2013Q1

REPORT INFORMATION
  Report Type: Spontaneous
  Country: US (occurrence: US)
  Receive Date: 20130125
  Receipt Date: 20130125
  Transmission Date: 20140127
  Serious: Yes (Other)
  Sender: FDA-Public Use
  Company Number: US-BAYER-2013-006848

PATIENT
  Age: 71 Year
  Sex: Male
  Weight: 136.5 kg

DRUGS (7)
  1. ALEVE SMOOTH GELS [Suspect]
     Indication: ARTHRALGIA
     Dosage: 1 DF, QD
     Route: 048
     Dates: start: 201301, end: 20130116
  2. METOPROLOL [Concomitant]
  3. LISINOPRIL [Concomitant]
  4. GLIPIZIDE [Concomitant]
  5. JANUMET [Concomitant]
  6. ASPIRIN [Concomitant]
  7. AMLODIPINE [Concomitant]

REACTIONS (2)
  - Dyspnoea [Recovered/Resolved]
  - Drug ineffective [None]
